FAERS Safety Report 8637398 (Version 2)
Quarter: 2013Q3

REPORT INFORMATION
  Report Type: Report from Study
  Country: FR (occurrence: FR)
  Receive Date: 20120627
  Receipt Date: 20130927
  Transmission Date: 20140515
  Serious: Yes (Hospitalization, Other)
  Sender: FDA-Public Use
  Company Number: FR-CELGENEUS-056-21880-12062221

PATIENT
  Age: 65 Year
  Sex: Male

DRUGS (12)
  1. REVLIMID [Suspect]
     Indication: PLASMA CELL MYELOMA
     Dosage: 25 MILLIGRAM
     Route: 048
     Dates: start: 20110524, end: 20120324
  2. BORTEZOMIB [Suspect]
     Indication: PLASMA CELL MYELOMA
     Route: 065
     Dates: start: 20110524
  3. DEXAMETHASONE [Suspect]
     Indication: PLASMA CELL MYELOMA
     Route: 065
     Dates: start: 20110524
  4. LERCAPRESS [Concomitant]
     Indication: HYPERTENSION
     Route: 065
     Dates: start: 200906
  5. FLUDEX [Concomitant]
     Indication: HYPERTENSION
     Route: 065
     Dates: start: 200906
  6. TARDYFERON [Concomitant]
     Indication: IRON DEFICIENCY
     Route: 065
     Dates: start: 201003
  7. KARDEGIC [Concomitant]
     Indication: THROMBOSIS PROPHYLAXIS
     Route: 065
     Dates: start: 201012
  8. ZYLORIC [Concomitant]
     Indication: HYPERURICAEMIA
     Route: 065
     Dates: start: 201012
  9. ZELITREX [Concomitant]
     Indication: VIRAL INFECTION
     Route: 065
     Dates: start: 20110516, end: 20120125
  10. BACTRIM [Concomitant]
     Indication: PNEUMOCYSTIS TEST POSITIVE
     Route: 065
     Dates: start: 20110516, end: 20120125
  11. LEDERFOLINE [Concomitant]
     Indication: TOXICITY TO VARIOUS AGENTS
     Route: 065
     Dates: start: 20110516, end: 20120125
  12. INNOHEP [Concomitant]
     Indication: THROMBOSIS PROPHYLAXIS
     Route: 065
     Dates: start: 20110516, end: 20120125

REACTIONS (1)
  - Papillary thyroid cancer [Recovered/Resolved]
